FAERS Safety Report 23454006 (Version 1)
Quarter: 2024Q1

REPORT INFORMATION
  Report Type: Spontaneous
  Country: IT (occurrence: IT)
  Receive Date: 20240130
  Receipt Date: 20240130
  Transmission Date: 20240410
  Serious: Yes (Death, Life-Threatening, Other)
  Sender: FDA-Public Use
  Company Number: IT-MACLEODS PHARMACEUTICALS US LTD-MAC2015002184

PATIENT

DRUGS (7)
  1. METFORMIN [Suspect]
     Active Substance: METFORMIN HYDROCHLORIDE
     Indication: Diabetes mellitus
     Dosage: UNK, 500 MG AT 8 A.M., 1,000 MG AT 1 P.M., AND 1,000 MG AT 7 P.M
     Route: 065
  2. METFORMIN [Suspect]
     Active Substance: METFORMIN HYDROCHLORIDE
     Dosage: 2500 MG, FULL DOSE
     Route: 065
  3. INSULIN NOS [Suspect]
     Active Substance: INSULIN NOS
     Indication: Product used for unknown indication
     Dosage: UNK (THREE OR MORE TIMES PER DAY BY INJECTION)
     Route: 065
  4. INSULIN NOS [Suspect]
     Active Substance: INSULIN NOS
     Dosage: 5 UNIT
     Route: 065
  5. IRBESARTAN [Concomitant]
     Active Substance: IRBESARTAN
     Indication: Product used for unknown indication
     Dosage: 300 MILLIGRAM
     Route: 065
  6. FUROSEMIDE [Concomitant]
     Active Substance: FUROSEMIDE
     Indication: Product used for unknown indication
     Dosage: UNK
     Route: 065
  7. HEPARIN [Concomitant]
     Active Substance: HEPARIN SODIUM
     Indication: Anticoagulant therapy
     Dosage: UNK, QD
     Route: 065

REACTIONS (10)
  - Ketoacidosis [Fatal]
  - Cardio-respiratory arrest [Fatal]
  - Toxicity to various agents [Fatal]
  - Overdose [Fatal]
  - Hyperkalaemia [Unknown]
  - Decreased appetite [Unknown]
  - Hypophagia [Unknown]
  - Pruritus [Unknown]
  - Urticaria [Unknown]
  - Lactic acidosis [Fatal]
